FAERS Safety Report 10915386 (Version 1)
Quarter: 2015Q1

REPORT INFORMATION
  Report Type: Spontaneous
  Country: US (occurrence: None)
  Receive Date: 20150311
  Receipt Date: 20150311
  Transmission Date: 20150721
  Serious: Yes (Disabling)
  Sender: FDA-Public Use
  Company Number: None

PATIENT
  Age: 80 Year
  Sex: Female
  Weight: 73.94 kg

DRUGS (1)
  1. LEVOFLOXACIN. [Suspect]
     Active Substance: LEVOFLOXACIN
     Indication: SINUSITIS
     Dosage: ONE TABLET
     Route: 048
     Dates: start: 20150224, end: 20150303

REACTIONS (6)
  - Pain in extremity [None]
  - Arthralgia [None]
  - Bone pain [None]
  - Burning sensation [None]
  - Musculoskeletal pain [None]
  - Paraesthesia [None]

NARRATIVE: CASE EVENT DATE: 20150303
